FAERS Safety Report 16008665 (Version 1)
Quarter: 2019Q1

REPORT INFORMATION
  Report Type: Spontaneous
  Country: US (occurrence: US)
  Receive Date: 20190225
  Receipt Date: 20190225
  Transmission Date: 20190418
  Serious: No
  Sender: FDA-Public Use
  Company Number: US-GLAXOSMITHKLINE-US2019030685

PATIENT
  Sex: Female

DRUGS (1)
  1. TRELEGY ELLIPTA [Suspect]
     Active Substance: FLUTICASONE FUROATE\UMECLIDINIUM BROMIDE\VILANTEROL TRIFENATATE
     Indication: CHRONIC OBSTRUCTIVE PULMONARY DISEASE
     Dosage: 1 PUFF(S), QD, 100MCG/62.5MCG/25MCG
     Route: 055

REACTIONS (4)
  - Candida infection [Recovered/Resolved]
  - Oral disorder [Recovered/Resolved]
  - Dysphonia [Not Recovered/Not Resolved]
  - Throat irritation [Recovered/Resolved]
